FAERS Safety Report 15255366 (Version 4)
Quarter: 2019Q3

REPORT INFORMATION
  Report Type: Spontaneous
  Country: JP (occurrence: JP)
  Receive Date: 20180808
  Receipt Date: 20190703
  Transmission Date: 20191004
  Serious: Yes (Hospitalization)
  Sender: FDA-Public Use
  Company Number: JP-EISAI MEDICAL RESEARCH-EC-2018-043660

PATIENT
  Age: 62 Year
  Sex: Male
  Weight: 46 kg

DRUGS (7)
  1. LENVIMA [Suspect]
     Active Substance: LENVATINIB
     Indication: THYROID CANCER
     Route: 048
     Dates: start: 20180515, end: 201807
  2. LENVIMA [Suspect]
     Active Substance: LENVATINIB
     Route: 048
     Dates: start: 20181030, end: 20190212
  3. LENVIMA [Suspect]
     Active Substance: LENVATINIB
     Dosage: 20MG ON A 7 ON/7 DAY OFF BASIS
     Route: 048
     Dates: start: 20190701
  4. LENVIMA [Suspect]
     Active Substance: LENVATINIB
     Route: 048
     Dates: start: 20180809, end: 20181023
  5. TAKECAB [Concomitant]
     Active Substance: VONOPRAZAN FUMURATE
     Indication: PRODUCT USED FOR UNKNOWN INDICATION
     Dosage: DOSE AND FREQUENCY UNKNOWN
     Route: 048
     Dates: start: 20180713
  6. LENVIMA [Suspect]
     Active Substance: LENVATINIB
     Route: 048
     Dates: start: 20190306, end: 2019
  7. LENVIMA [Suspect]
     Active Substance: LENVATINIB
     Route: 048
     Dates: start: 201807, end: 20180728

REACTIONS (10)
  - Diarrhoea [Recovering/Resolving]
  - Decreased appetite [Recovered/Resolved]
  - Proteinuria [Unknown]
  - Duodenal ulcer [Recovered/Resolved]
  - Nausea [Recovering/Resolving]
  - Hypotension [Unknown]
  - Malaise [Recovered/Resolved]
  - Hypertension [Unknown]
  - Dysgeusia [Not Recovered/Not Resolved]
  - Shock [Unknown]

NARRATIVE: CASE EVENT DATE: 20180713
